FAERS Safety Report 8223749-1 (Version None)
Quarter: 2012Q1

REPORT INFORMATION
  Report Type: 
  Country: None (occurrence: None)
  Receive Date: 20120316
  Receipt Date: 20120301
  Transmission Date: 20120608
  Serious: Yes (Other)
  Sender: FDA-Public Use
  Company Number: ES-1191015

PATIENT

DRUGS (13)
  1. VIGAMOX [Suspect]
     Dosage: (OPHTHALMIC)
     Route: 047
  2. BETADINE [Suspect]
  3. AMIKACINA (AMIKACINA NORMON 500 MG) (ASTRAZENECA) [Suspect]
  4. CEFTAZIDIMA (CEFTAZIDEMA 500 MG) (KLONAL) [Suspect]
  5. VANCOMICINA (VANCOMICINA 500 MG) (BIOTENK) [Suspect]
  6. BSS (BSS 500CC) (ALCON) [Suspect]
  7. ACTOCORTINA (ACTOCORTINA 500 MG) (LEO AB) [Suspect]
  8. VISCOAT (VISCOAT) [Suspect]
  9. LIDOCAINE 2% [Suspect]
  10. LIQUIFILM (LIQUIFILM LAGRIMAS) (ALLERGAN) [Suspect]
  11. BETADINE [Suspect]
  12. SENSORCAINE [Suspect]
  13. LIQUIFILM (LIQUIFILM LAGRIMAS) (ALLERGAN) [Suspect]

REACTIONS (1)
  - ENDOPHTHALMITIS [None]
